FAERS Safety Report 8250443-3 (Version None)
Quarter: 2012Q2

REPORT INFORMATION
  Report Type: 
  Country: None (occurrence: None)
  Receive Date: 20120402
  Receipt Date: 20120228
  Transmission Date: 20120825
  Serious: Yes (Hospitalization)
  Sender: FDA-Public Use
  Company Number: US-ROCHE-1053752

PATIENT
  Sex: Female

DRUGS (1)
  1. KLONOPIN [Suspect]
     Indication: PRODUCT USED FOR UNKNOWN INDICATION

REACTIONS (10)
  - HYPERHIDROSIS [None]
  - AMNESIA [None]
  - COORDINATION ABNORMAL [None]
  - TREMOR [None]
  - MAJOR DEPRESSION [None]
  - FATIGUE [None]
  - MALAISE [None]
  - MUSCLE SPASMS [None]
  - UNEVALUABLE EVENT [None]
  - DYSPHAGIA [None]
